FAERS Safety Report 22148723 (Version 1)
Quarter: 2023Q1

REPORT INFORMATION
  Report Type: Report from Study
  Country: CN (occurrence: CN)
  Receive Date: 20230328
  Receipt Date: 20230328
  Transmission Date: 20230417
  Serious: Yes (Hospitalization, Other)
  Sender: FDA-Public Use
  Company Number: CN-TAKEDA-2022TUS014135

PATIENT
  Age: 75 Year
  Sex: Female
  Weight: 72.5 kg

DRUGS (13)
  1. IXAZOMIB [Suspect]
     Active Substance: IXAZOMIB
     Indication: Plasma cell myeloma refractory
     Dosage: 3 MILLIGRAM, 1/WEEK
     Route: 048
     Dates: start: 20210813
  2. DEXAMETHASONE [Suspect]
     Active Substance: DEXAMETHASONE
     Indication: Plasma cell myeloma
     Dosage: 10 MILLIGRAM, QD
     Route: 048
     Dates: start: 20210813
  3. ISOSORBIDE MONONITRATE [Concomitant]
     Active Substance: ISOSORBIDE MONONITRATE
     Indication: Coronary artery disease
     Dosage: 40 MILLIGRAM, QD
     Route: 048
     Dates: start: 202011
  4. FEBUXOSTAT [Concomitant]
     Active Substance: FEBUXOSTAT
     Indication: Gout
     Dosage: 40 MILLIGRAM, QD
     Route: 048
     Dates: start: 202108
  5. AMLODIPINE BESYLATE [Concomitant]
     Active Substance: AMLODIPINE BESYLATE
     Indication: Hypertension
     Dosage: 5 MILLILITER, QD
     Route: 048
     Dates: start: 202011
  6. CALCITRIOL [Concomitant]
     Active Substance: CALCITRIOL
     Indication: Osteoporosis
     Dosage: 0.25 MICROGRAM, QD
     Route: 048
     Dates: start: 202010
  7. CALCIUM CARBONATE [Concomitant]
     Active Substance: CALCIUM CARBONATE
     Indication: Mineral supplementation
     Dosage: 0.5 GRAM, TID
     Route: 048
     Dates: start: 202010
  8. VAPORINDIO [Concomitant]
     Indication: Viral infection
     Dosage: 0.125 GRAM, QD
     Route: 048
     Dates: start: 202010
  9. SODIUM BICARBONATE [Concomitant]
     Active Substance: SODIUM BICARBONATE
     Indication: Abdominal discomfort
     Dosage: 0.5 GRAM, TID
     Route: 048
     Dates: start: 202010
  10. HERBALS [Concomitant]
     Active Substance: HERBALS
     Indication: Renal failure
     Dosage: 5 GRAM
     Route: 048
     Dates: start: 202009
  11. TORSEMIDE [Concomitant]
     Active Substance: TORSEMIDE
     Indication: Oedema
     Dosage: 20 MILLIGRAM, QD
     Route: 048
     Dates: start: 20210813
  12. Yang xue yin [Concomitant]
     Indication: Anaemia
     Dosage: 10 MILLILITER, BID
     Route: 048
     Dates: start: 20210913
  13. CYCLOPHOSPHAMIDE [Concomitant]
     Active Substance: CYCLOPHOSPHAMIDE
     Indication: Plasma cell myeloma
     Dosage: 50 MILLIGRAM, TID
     Route: 048
     Dates: start: 20210913

REACTIONS (3)
  - Pneumonia [Unknown]
  - Urinary tract infection [Recovered/Resolved]
  - Off label use [Unknown]

NARRATIVE: CASE EVENT DATE: 20211001
